FAERS Safety Report 4996616-4 (Version None)
Quarter: 2006Q2

REPORT INFORMATION
  Report Type: 
  Country: None (occurrence: None)
  Receive Date: 20060509
  Receipt Date: 20060327
  Transmission Date: 20061013
  Serious: Yes (Death, Life-Threatening, Hospitalization)
  Sender: FDA-Public Use
  Company Number: NZ-BRISTOL-MYERS SQUIBB COMPANY-13335138

PATIENT
  Age: 62 Year
  Sex: Male

DRUGS (7)
  1. CYCLOPHOSPHAMIDE [Suspect]
     Indication: DRUG USE FOR UNKNOWN INDICATION
     Route: 041
     Dates: start: 20060306, end: 20060308
  2. FLUDARABINE [Suspect]
     Indication: DRUG USE FOR UNKNOWN INDICATION
     Route: 041
     Dates: start: 20060306, end: 20060308
  3. RITUXIMAB [Suspect]
     Indication: DRUG USE FOR UNKNOWN INDICATION
     Route: 042
  4. CO-TRIMOXAZOLE [Concomitant]
     Dates: start: 20060302, end: 20060311
  5. NYSTATIN [Concomitant]
     Dates: start: 20060302, end: 20060310
  6. ACYCLOVIR [Concomitant]
     Dates: start: 20060302, end: 20060312
  7. AMITRIPTYLINE HCL [Concomitant]
     Dates: end: 20060315

REACTIONS (4)
  - ANXIETY [None]
  - CHRONIC RESPIRATORY DISEASE [None]
  - RENAL FAILURE ACUTE [None]
  - TUMOUR LYSIS SYNDROME [None]
